FAERS Safety Report 7091461-0 (Version None)
Quarter: 2010Q4

REPORT INFORMATION
  Report Type: 
  Country: None (occurrence: None)
  Receive Date: 20101105
  Receipt Date: 20101105
  Transmission Date: 20110411
  Serious: Yes (Hospitalization)
  Sender: FDA-Public Use
  Company Number: None

PATIENT
  Age: 54 Year
  Sex: Female
  Weight: 67.8 kg

DRUGS (8)
  1. IMATINIB 400MG [Suspect]
     Indication: CHRONIC MYELOID LEUKAEMIA
     Dosage: IMATINIB 400 MG 1X DAILY PO
     Route: 048
     Dates: start: 20091229, end: 20100714
  2. ZILEUTON 600 MG [Suspect]
     Indication: CHRONIC MYELOID LEUKAEMIA
     Dosage: ZILEUTON 600 MG 2X DAILY PO
     Route: 048
     Dates: start: 20100512, end: 20100714
  3. ATENOLOL [Concomitant]
  4. CARAFATE [Concomitant]
  5. IBUPROFEN [Concomitant]
  6. IBUPROFEN [Concomitant]
  7. OMEPRAZOLE [Concomitant]
  8. PROAIR HFA [Concomitant]

REACTIONS (10)
  - ACUTE HEPATIC FAILURE [None]
  - ASCITES [None]
  - HEPATIC ENCEPHALOPATHY [None]
  - HEPATIC NECROSIS [None]
  - HEPATITIS ACUTE [None]
  - INFECTION [None]
  - LIVER TRANSPLANT [None]
  - PLEURAL EFFUSION [None]
  - PSYCHOTIC DISORDER [None]
  - RENAL FAILURE [None]
